FAERS Safety Report 13554162 (Version 1)
Quarter: 2017Q2

REPORT INFORMATION
  Report Type: Spontaneous
  Country: US (occurrence: US)
  Receive Date: 20170517
  Receipt Date: 20170517
  Transmission Date: 20170830
  Serious: No
  Sender: FDA-Public Use
  Company Number: US-PERRIGO-17US001235

PATIENT
  Age: 1 Year
  Sex: Male
  Weight: 9.7 kg

DRUGS (3)
  1. ACETAMINOPHEN. [Suspect]
     Active Substance: ACETAMINOPHEN
     Indication: PYREXIA
     Dosage: 120 MG, SINGLE AT 0500
     Route: 054
     Dates: start: 20170128, end: 20170128
  2. ACETAMINOPHEN. [Suspect]
     Active Substance: ACETAMINOPHEN
     Dosage: 120 MG, SINGLE
     Route: 054
     Dates: start: 20170128, end: 20170128
  3. ACETAMINOPHEN. [Suspect]
     Active Substance: ACETAMINOPHEN
     Dosage: 120 MG, SINGLE
     Route: 054
     Dates: start: 20170129, end: 20170129

REACTIONS (3)
  - Drug administered to patient of inappropriate age [Recovered/Resolved]
  - Rash generalised [Recovering/Resolving]
  - Hypersensitivity [Recovering/Resolving]

NARRATIVE: CASE EVENT DATE: 20170128
